FAERS Safety Report 13745103 (Version 3)
Quarter: 2017Q3

REPORT INFORMATION
  Report Type: Spontaneous
  Country: SE (occurrence: SE)
  Receive Date: 20170712
  Receipt Date: 20170824
  Transmission Date: 20171127
  Serious: Yes (Hospitalization)
  Sender: FDA-Public Use
  Company Number: SE-CONCORDIA PHARMACEUTICALS INC.-GSH201707-004006

PATIENT
  Age: 82 Year
  Sex: Male

DRUGS (2)
  1. ALFUZOSIN TABLET [Suspect]
     Active Substance: ALFUZOSIN
     Indication: HYPERTENSION
     Route: 048
     Dates: start: 20170419, end: 20170421
  2. ALFUZOSIN TABLET [Suspect]
     Active Substance: ALFUZOSIN
     Dosage: ALFUZOSIN 10 TABLETS PER ORAL
     Route: 048

REACTIONS (1)
  - Confusional state [Recovered/Resolved]

NARRATIVE: CASE EVENT DATE: 20170421
